FAERS Safety Report 14550831 (Version 1)
Quarter: 2018Q1

REPORT INFORMATION
  Report Type: Spontaneous
  Country: JP (occurrence: JP)
  Receive Date: 20180220
  Receipt Date: 20180220
  Transmission Date: 20180509
  Serious: Yes (Death, Other)
  Sender: FDA-Public Use
  Company Number: JP-TOLMAR, INC.-TOLG20180076

PATIENT
  Age: 66 Year
  Sex: Female
  Weight: 40.5 kg

DRUGS (4)
  1. CEFTRIAXONE. [Concomitant]
     Active Substance: CEFTRIAXONE
     Indication: PELVIC ABSCESS
     Dosage: UNKNOWN
     Route: 065
  2. 5-FLUOROURACIL [Interacting]
     Active Substance: FLUOROURACIL
     Indication: RECTAL CANCER
     Dosage: 530 MG
     Route: 042
  3. METRONIDAZOLE. [Suspect]
     Active Substance: METRONIDAZOLE
     Indication: PELVIC ABSCESS
     Dosage: TOTAL BODY EXPOSURE 2G
     Route: 065
  4. 5-FLUOROURACIL [Interacting]
     Active Substance: FLUOROURACIL
     Dosage: 3200 MG OVER 46 HOURS
     Route: 042

REACTIONS (14)
  - Blindness [Unknown]
  - Visual field defect [Unknown]
  - Facial paresis [Unknown]
  - Depressed level of consciousness [Fatal]
  - Coma [Fatal]
  - Gaze palsy [Unknown]
  - Vision blurred [Unknown]
  - Altered state of consciousness [Unknown]
  - Bradycardia [Fatal]
  - Leukoencephalopathy [Fatal]
  - Mydriasis [Unknown]
  - Nystagmus [Unknown]
  - Monoparesis [Unknown]
  - Hyperreflexia [Unknown]
